FAERS Safety Report 4834914-5 (Version None)
Quarter: 2005Q4

REPORT INFORMATION
  Report Type: 
  Country: None (occurrence: None)
  Receive Date: 20051115
  Receipt Date: 20051103
  Transmission Date: 20060501
  Serious: Yes (Hospitalization)
  Sender: FDA-Public Use
  Company Number: 219181

PATIENT
  Sex: Female
  Weight: 91.6 kg

DRUGS (3)
  1. AVASTIN (BEVACIZUMAB)PWDR + SOLVENT, INFUSIO SOLN, 100MG [Suspect]
     Indication: NON-SMALL CELL LUNG CANCER
     Dates: start: 20051017
  2. CARBOPLATIN [Suspect]
     Indication: NON-SMALL CELL LUNG CANCER
     Dates: start: 20051017
  3. ALIMTA [Suspect]
     Indication: NON-SMALL CELL LUNG CANCER
     Dates: start: 20051017

REACTIONS (2)
  - NEUTROPENIA [None]
  - PNEUMONIA [None]
